FAERS Safety Report 10849603 (Version 1)
Quarter: 2015Q1

REPORT INFORMATION
  Report Type: Spontaneous
  Country: US (occurrence: US)
  Receive Date: 20150221
  Receipt Date: 20150221
  Transmission Date: 20150721
  Serious: No
  Sender: FDA-Public Use
  Company Number: US-SA-2014SA175568

PATIENT
  Sex: Female

DRUGS (1)
  1. ALUMINIUM HYDROXIDE/MAGNESIUM TRISILICATE [Suspect]
     Active Substance: ALUMINUM HYDROXIDE\MAGNESIUM TRISILICATE
     Indication: GASTROOESOPHAGEAL REFLUX DISEASE
     Route: 065

REACTIONS (3)
  - Condition aggravated [Unknown]
  - Dry eye [Unknown]
  - Dry mouth [Unknown]
